FAERS Safety Report 5043155-0 (Version None)
Quarter: 2006Q3

REPORT INFORMATION
  Report Type: 
  Country: None (occurrence: None)
  Receive Date: 20060703
  Receipt Date: 20060703
  Transmission Date: 20061208
  Serious: Yes (Life-Threatening)
  Sender: FDA-Public Use
  Company Number: None

PATIENT
  Sex: Female
  Weight: 95.2554 kg

DRUGS (19)
  1. MAXIPIME [Suspect]
     Indication: PNEUMONIA
     Dosage: 2GM EVERY 24 HOURS IV
     Route: 042
     Dates: start: 20060603, end: 20060613
  2. GENTAMICIN [Suspect]
     Indication: PNEUMONIA
     Dosage: 210 MG EVERY 24 HOURS IV
     Route: 042
     Dates: start: 20060603, end: 20060612
  3. BUPROPION HCL [Concomitant]
  4. REQUIP [Concomitant]
  5. SPIRIVA [Concomitant]
  6. VIT A AND D [Concomitant]
  7. PREDNISONE [Concomitant]
  8. MOBIC [Concomitant]
  9. PROVIGIL [Concomitant]
  10. ASPIRIN [Concomitant]
  11. OCUVITE [Concomitant]
  12. LEXAPRO [Concomitant]
  13. COMBIVENT [Concomitant]
  14. DYAZIDE [Concomitant]
  15. SINGULAIR [Concomitant]
  16. PRILOSEC [Concomitant]
  17. ADVAIR DISKUS 100/50 [Concomitant]
  18. HYDROCODONE [Concomitant]
  19. LORAZEPAM [Concomitant]

REACTIONS (2)
  - BLOOD CREATININE INCREASED [None]
  - BLOOD UREA INCREASED [None]
